FAERS Safety Report 5171749-0 (Version None)
Quarter: 2006Q4

REPORT INFORMATION
  Report Type: 
  Country: None (occurrence: None)
  Receive Date: 20061213
  Receipt Date: 20060713
  Transmission Date: 20070319
  Serious: No
  Sender: FDA-Public Use
  Company Number: US-AMGEN-KDL186397

PATIENT
  Sex: Female
  Weight: 57.9 kg

DRUGS (2)
  1. ENBREL [Suspect]
     Indication: JUVENILE ARTHRITIS
     Route: 058
     Dates: start: 20060201
  2. ENBREL [Suspect]
     Dates: start: 20060707

REACTIONS (2)
  - INJECTION SITE PAIN [None]
  - INJECTION SITE REACTION [None]
